FAERS Safety Report 7228961-6 (Version None)
Quarter: 2011Q1

REPORT INFORMATION
  Report Type: 
  Country: None (occurrence: None)
  Receive Date: 20110117
  Receipt Date: 20110106
  Transmission Date: 20110831
  Serious: Yes (Other)
  Sender: FDA-Public Use
  Company Number: US-SOLVAY-00211000142

PATIENT
  Age: 786 Month
  Sex: Male
  Weight: 72.727 kg

DRUGS (2)
  1. ANDROGEL [Suspect]
     Indication: TESTICULAR FAILURE
     Dosage: DAILY DOSE:  2 PACKETS; AS USED: 2 PACKETS DAILY
     Route: 062
     Dates: start: 20090101
  2. XANAX [Concomitant]
     Indication: SLEEP DISORDER
     Dosage: DAILY DOSE:  UNKNOWN
     Route: 065

REACTIONS (2)
  - HEADACHE [None]
  - PITUITARY HAEMORRHAGE [None]
